FAERS Safety Report 6154915-7 (Version None)
Quarter: 2009Q2

REPORT INFORMATION
  Report Type: 
  Country: None (occurrence: None)
  Receive Date: 20090414
  Receipt Date: 20090408
  Transmission Date: 20091009
  Serious: Yes (Hospitalization, Other)
  Sender: FDA-Public Use
  Company Number: BR-ABBOTT-09P-020-0500856-00

PATIENT
  Sex: Female
  Weight: 80 kg

DRUGS (8)
  1. HUMIRA [Suspect]
     Indication: RHEUMATOID ARTHRITIS
     Route: 058
     Dates: start: 20080801, end: 20081223
  2. HUMIRA [Suspect]
     Dates: start: 20090201
  3. ISONIAZID [Suspect]
     Indication: TUBERCULIN TEST POSITIVE
     Dates: start: 20080801
  4. OMEPRAZOLE [Concomitant]
     Indication: GASTRITIS
  5. PREDNISONE TAB [Concomitant]
     Indication: RHEUMATOID ARTHRITIS
     Dates: start: 19950101
  6. HYDROCHLOROTHIAZIDE [Concomitant]
     Indication: HYPERTENSION
     Dates: start: 19950101
  7. AMLODIPINE [Concomitant]
     Indication: HYPERTENSION
  8. ATENOLOL [Concomitant]
     Indication: HYPERTENSION

REACTIONS (4)
  - LIVER DISORDER [None]
  - MUSCLE RIGIDITY [None]
  - THYROID CYST [None]
  - THYROID NEOPLASM [None]
